FAERS Safety Report 6840195-3 (Version None)
Quarter: 2010Q3

REPORT INFORMATION
  Report Type: 
  Country: None (occurrence: None)
  Receive Date: 20100714
  Receipt Date: 20100707
  Transmission Date: 20110219
  Serious: Yes (Death)
  Sender: FDA-Public Use
  Company Number: ES-PFIZER INC-2010085059

PATIENT
  Age: 61 Year
  Sex: Male

DRUGS (2)
  1. SUNITINIB MALATE [Suspect]
     Indication: RENAL CELL CARCINOMA
     Dosage: UNK, CYCLIC
     Route: 048
     Dates: start: 20090101, end: 20100301
  2. PAZOPANIB [Concomitant]
     Indication: RENAL CELL CARCINOMA
     Dosage: UNK
     Route: 048
     Dates: start: 20090101, end: 20090101

REACTIONS (2)
  - ACUTE RESPIRATORY FAILURE [None]
  - DIFFUSE ALVEOLAR DAMAGE [None]
